FAERS Safety Report 13325162 (Version 6)
Quarter: 2017Q2

REPORT INFORMATION
  Report Type: Report from Study
  Country: US (occurrence: US)
  Receive Date: 20170310
  Receipt Date: 20170511
  Transmission Date: 20170830
  Serious: Yes (Hospitalization, Other)
  Sender: FDA-Public Use
  Company Number: US-ACTELION-A-US2017-150175

PATIENT
  Age: 39 Year
  Sex: Female
  Weight: 84.35 kg

DRUGS (18)
  1. PROAMATINE [Concomitant]
     Active Substance: MIDODRINE HYDROCHLORIDE
     Dosage: 10 MG, TID
     Route: 048
  2. VELETRI [Suspect]
     Active Substance: EPOPROSTENOL
     Indication: PULMONARY HYPERTENSION
     Dosage: 26 NG/KG, PER MIN
     Route: 042
     Dates: start: 201701
  3. VELETRI [Suspect]
     Active Substance: EPOPROSTENOL
     Dosage: 28 NG/KG, PER MIN
     Route: 042
  4. TUMS [Concomitant]
     Active Substance: CALCIUM CARBONATE
     Dosage: UNK
     Dates: start: 20170214
  5. PEPCID [Concomitant]
     Active Substance: FAMOTIDINE
     Dosage: 20 MG, BID
  6. CARAFATE [Concomitant]
     Active Substance: SUCRALFATE
     Dosage: 1 G, AC AND HS
     Dates: start: 20170218
  7. PLAQUENIL [Concomitant]
     Active Substance: HYDROXYCHLOROQUINE SULFATE
     Dosage: 200 MG, BID
  8. IRON FERROUS SULFATE [Concomitant]
     Dosage: 325 MG, TID
     Dates: start: 20170228
  9. LASIX [Concomitant]
     Active Substance: FUROSEMIDE
     Dosage: 20 MG, QD
  10. K-LOR [Concomitant]
     Active Substance: POTASSIUM CHLORIDE
     Dosage: 2 PACKETS, QD
  11. LETAIRIS [Concomitant]
     Active Substance: AMBRISENTAN
     Dosage: UNK
     Dates: start: 20170118, end: 20170219
  12. PEPCID [Concomitant]
     Active Substance: FAMOTIDINE
     Dosage: 20 MG, QPM
  13. PROAMATINE [Concomitant]
     Active Substance: MIDODRINE HYDROCHLORIDE
     Dosage: 5 MG, TID
     Dates: start: 20170228
  14. DULCOLAX NOS [Concomitant]
     Active Substance: BISACODYL OR DOCUSATE SODIUM
     Dosage: UNK
     Dates: start: 20170214
  15. SILDENAFIL. [Concomitant]
     Active Substance: SILDENAFIL
  16. MYLANTA [Concomitant]
     Active Substance: ALUMINUM HYDROXIDE\DIMETHICONE\MAGNESIUM HYDROXIDE
     Dosage: UNK UNK, Q6HRS, PRN
  17. PREDNISONE. [Concomitant]
     Active Substance: PREDNISONE
     Dosage: 15 MG, QD
  18. PROTONIX [Concomitant]
     Active Substance: PANTOPRAZOLE SODIUM
     Dosage: 40 MG, BID

REACTIONS (24)
  - Haematochezia [Unknown]
  - Dizziness [Unknown]
  - Sleep disorder [Unknown]
  - Transfusion [Unknown]
  - Faeces discoloured [Unknown]
  - Oedema peripheral [Unknown]
  - Melaena [Unknown]
  - Nausea [Unknown]
  - Vomiting [Unknown]
  - Pain in jaw [Recovered/Resolved]
  - Haematemesis [Unknown]
  - Pain in jaw [Unknown]
  - Fatigue [Recovering/Resolving]
  - Upper gastrointestinal haemorrhage [Unknown]
  - Anaemia [Recovering/Resolving]
  - Haemoglobin decreased [Recovering/Resolving]
  - Gastrointestinal inflammation [Unknown]
  - Gastritis [Unknown]
  - Hypotension [Not Recovered/Not Resolved]
  - Heart rate increased [Unknown]
  - Haemorrhage [Unknown]
  - Abdominal pain upper [Recovering/Resolving]
  - Weight increased [Unknown]
  - Malaise [Unknown]

NARRATIVE: CASE EVENT DATE: 20170118
